FAERS Safety Report 16919338 (Version 1)
Quarter: 2019Q4

REPORT INFORMATION
  Report Type: Spontaneous
  Country: US (occurrence: US)
  Receive Date: 20191014
  Receipt Date: 20191014
  Transmission Date: 20200122
  Serious: No
  Sender: FDA-Public Use
  Company Number: None

PATIENT
  Age: 48 Year
  Sex: Female
  Weight: 87.75 kg

DRUGS (1)
  1. OXYCODONE-ACETAMINOPHEN 5/325 [Suspect]
     Active Substance: ACETAMINOPHEN\OXYCODONE HYDROCHLORIDE
     Indication: PAIN
     Dosage: ?          QUANTITY:34 TABLET(S);?
     Route: 048
     Dates: start: 20191004

REACTIONS (6)
  - Drug ineffective [None]
  - Ill-defined disorder [None]
  - Vomiting [None]
  - Diarrhoea [None]
  - Product quality issue [None]
  - Nausea [None]

NARRATIVE: CASE EVENT DATE: 20191004
